FAERS Safety Report 17472865 (Version 1)
Quarter: 2020Q1

REPORT INFORMATION
  Report Type: Spontaneous
  Country: US (occurrence: US)
  Receive Date: 20200228
  Receipt Date: 20200228
  Transmission Date: 20200409
  Serious: No
  Sender: FDA-Public Use
  Company Number: US-GLAXOSMITHKLINE-US2020031431

PATIENT
  Sex: Female

DRUGS (2)
  1. CORTISONE ACETATE. [Concomitant]
     Active Substance: CORTISONE ACETATE
     Indication: PRODUCT USED FOR UNKNOWN INDICATION
     Dosage: UNK
     Route: 065
  2. BENLYSTA [Suspect]
     Active Substance: BELIMUMAB
     Indication: PRODUCT USED FOR UNKNOWN INDICATION
     Dosage: UNK UNK, WE
     Route: 058
     Dates: start: 2019

REACTIONS (7)
  - Somnolence [Recovered/Resolved]
  - Fatigue [Recovering/Resolving]
  - Arthralgia [Recovered/Resolved]
  - Energy increased [Recovering/Resolving]
  - Headache [Recovered/Resolved]
  - Migraine [Recovering/Resolving]
  - Gastric disorder [Recovered/Resolved]
